FAERS Safety Report 9091046 (Version 2)
Quarter: 2013Q2

REPORT INFORMATION
  Report Type: Spontaneous
  Country: US (occurrence: US)
  Receive Date: 20130201
  Receipt Date: 20130419
  Transmission Date: 20140414
  Serious: No
  Sender: FDA-Public Use
  Company Number: US-009507513-1301USA011622

PATIENT
  Age: 38 Year
  Sex: Male
  Weight: 103.86 kg

DRUGS (3)
  1. VICTRELIS [Suspect]
     Indication: HEPATITIS C
     Dosage: UNK
  2. REBETOL [Suspect]
  3. PEGASYS [Suspect]

REACTIONS (2)
  - Weight decreased [Unknown]
  - Therapeutic response unexpected [Unknown]
